FAERS Safety Report 12172182 (Version 2)
Quarter: 2016Q2

REPORT INFORMATION
  Report Type: Report from Study
  Country: IT (occurrence: IT)
  Receive Date: 20160311
  Receipt Date: 20160401
  Transmission Date: 20160815
  Serious: Yes (Other)
  Sender: FDA-Public Use
  Company Number: IT-SEATTLE GENETICS-2016SGN00339

PATIENT

DRUGS (1)
  1. BRENTUXIMAB VEDOTIN [Suspect]
     Active Substance: BRENTUXIMAB VEDOTIN
     Indication: HODGKIN^S DISEASE
     Dosage: 180 MG, UNK
     Route: 042
     Dates: start: 20151223, end: 20151223

REACTIONS (1)
  - Neurotoxicity [Recovered/Resolved with Sequelae]

NARRATIVE: CASE EVENT DATE: 20160105
